FAERS Safety Report 9308901 (Version 3)
Quarter: 2013Q2

REPORT INFORMATION
  Report Type: Spontaneous
  Country: CA (occurrence: CA)
  Receive Date: 20130524
  Receipt Date: 20130620
  Transmission Date: 20140414
  Serious: Yes (Hospitalization, Other)
  Sender: FDA-Public Use
  Company Number: CA-AMGEN-CANSP2013020833

PATIENT
  Age: 58 Year
  Sex: Female
  Weight: 49.98 kg

DRUGS (3)
  1. NPLATE [Suspect]
     Indication: IDIOPATHIC THROMBOCYTOPENIC PURPURA
     Dosage: 350 MUG, UNK
     Dates: start: 20121103
  2. NPLATE [Suspect]
  3. PREDNISONE [Concomitant]
     Dosage: 40 MG, QD
     Route: 048

REACTIONS (5)
  - Platelet count abnormal [Unknown]
  - Headache [Unknown]
  - Epistaxis [Unknown]
  - Haematoma [Unknown]
  - Gingival bleeding [Unknown]
